FAERS Safety Report 21656280 (Version 3)
Quarter: 2024Q2

REPORT INFORMATION
  Report Type: Spontaneous
  Country: US (occurrence: US)
  Receive Date: 20221129
  Receipt Date: 20240613
  Transmission Date: 20240716
  Serious: Yes (Other)
  Sender: FDA-Public Use
  Company Number: US-PFIZER INC-202201333009

PATIENT
  Age: 53 Year
  Sex: Female
  Weight: 124.72 kg

DRUGS (83)
  1. XELJANZ XR [Suspect]
     Active Substance: TOFACITINIB CITRATE
     Dosage: 11 MG, DAILY
     Route: 048
     Dates: start: 202204
  2. XELJANZ XR [Suspect]
     Active Substance: TOFACITINIB CITRATE
     Dosage: 11 MG, DAILY
     Route: 048
  3. XELJANZ XR [Suspect]
     Active Substance: TOFACITINIB CITRATE
     Dosage: 11 MG 1 X DAY PM
  4. EMGALITY [Concomitant]
     Active Substance: GALCANEZUMAB-GNLM
     Dosage: UNK (EMGALITY PEN 120 MG/ML PEN INJECTOR)
  5. ARMODAFINIL [Concomitant]
     Active Substance: ARMODAFINIL
     Dosage: UNK
  6. PROZAC [Concomitant]
     Active Substance: FLUOXETINE HYDROCHLORIDE
     Dosage: UNK
  7. PROZAC [Concomitant]
     Active Substance: FLUOXETINE HYDROCHLORIDE
     Dosage: 80 MG 1 X DAY AM
  8. PROZAC [Concomitant]
     Active Substance: FLUOXETINE HYDROCHLORIDE
     Dosage: UNK
  9. BIOTIN [Concomitant]
     Active Substance: BIOTIN
     Dosage: UNK
  10. FOLIC ACID [Concomitant]
     Active Substance: FOLIC ACID
     Dosage: UNK
  11. AJOVY [Concomitant]
     Active Substance: FREMANEZUMAB-VFRM
     Dosage: UNK (AJOVY AUTOINJECTOR)
  12. AJOVY [Concomitant]
     Active Substance: FREMANEZUMAB-VFRM
     Dosage: 225 MG/1 ML INJECTION 1 X MONTH
  13. BUSPIRONE [Concomitant]
     Active Substance: BUSPIRONE HYDROCHLORIDE
     Dosage: UNK
  14. METHOTREXATE [Concomitant]
     Active Substance: METHOTREXATE
     Dosage: 2.5 MG 6 X AM 1 X WEEK ON MONDAY
  15. CELEBREX [Concomitant]
     Active Substance: CELECOXIB
     Dosage: UNK
  16. CELEBREX [Concomitant]
     Active Substance: CELECOXIB
     Dosage: 200 MG 2 X DAY AM/PM
  17. ALBUTEROL [Concomitant]
     Active Substance: ALBUTEROL
     Dosage: UNK
  18. XANAX [Concomitant]
     Active Substance: ALPRAZOLAM
     Dosage: UNK
  19. XANAX [Concomitant]
     Active Substance: ALPRAZOLAM
     Dosage: 1.0 MG 1 TAB 3 X DAILY AS NEEDED
  20. NORVASC [Concomitant]
     Active Substance: AMLODIPINE BESYLATE
     Dosage: 10 MG 1 X DAY AM
  21. LIPITOR [Concomitant]
     Active Substance: ATORVASTATIN CALCIUM
     Dosage: 10 MG 1 X DAY AM
  22. HYDROXYZINE [Concomitant]
     Active Substance: HYDROXYZINE HYDROCHLORIDE
     Dosage: 25 MG 1 X DAY PM AS NEEDED
  23. CLOBETASOL [Concomitant]
     Active Substance: CLOBETASOL
     Dosage: UNK (CLOBETASOL EMOLLIENT) 0.5 CREAM AS NEEDED
  24. PEPCID [Concomitant]
     Active Substance: FAMOTIDINE
     Dosage: UNK
  25. PEPCID [Concomitant]
     Active Substance: FAMOTIDINE
     Dosage: 40 MG 1 X DAY PM
  26. POTASSIUM [Concomitant]
     Active Substance: POTASSIUM
     Dosage: UNK
  27. BREZTRI [Concomitant]
     Active Substance: BUDESONIDE\FORMOTEROL\GLYCOPYRROLATE
     Dosage: 160/9/4.8 2 PUFFS 2 X DAY
  28. TIZANIDINE [Concomitant]
     Active Substance: TIZANIDINE
     Dosage: 4 MG 1 X 12 HRS AS NEEDED
  29. SULFASALAZINE [Concomitant]
     Active Substance: SULFASALAZINE
     Dosage: UNK
  30. MOMETASONE [Concomitant]
     Active Substance: MOMETASONE
     Dosage: UNK
  31. LORATADINE [Concomitant]
     Active Substance: LORATADINE
     Dosage: UNK
  32. MONTELUKAST [Concomitant]
     Active Substance: MONTELUKAST SODIUM
     Dosage: 10 MG 1 X DAY AM
  33. FISH OIL [Concomitant]
     Active Substance: FISH OIL
     Dosage: UNK
  34. ONDANSETRON [Concomitant]
     Active Substance: ONDANSETRON
     Dosage: UNK
  35. TOPROL XL [Concomitant]
     Active Substance: METOPROLOL SUCCINATE
     Dosage: UNK
  36. NURTEC ODT [Concomitant]
     Active Substance: RIMEGEPANT SULFATE
     Dosage: NURTEC ODT 75 MG TAB RAPDIS
  37. NURTEC ODT [Concomitant]
     Active Substance: RIMEGEPANT SULFATE
     Dosage: 75 MG 1 X DAY AS NEEDED
  38. BUSPIRONE HCL [Concomitant]
     Active Substance: BUSPIRONE HYDROCHLORIDE
     Dosage: UNK
  39. BUSPIRONE HCL [Concomitant]
     Active Substance: BUSPIRONE HYDROCHLORIDE
     Dosage: 30 MG 1 X AM AND PM
  40. ALBUTEROL SULFATE [Concomitant]
     Active Substance: ALBUTEROL SULFATE
     Dosage: UNK
  41. PREDNISONE [Concomitant]
     Active Substance: PREDNISONE
     Dosage: UNK
  42. PREDNISONE [Concomitant]
     Active Substance: PREDNISONE
     Dosage: 5 MG / 10 MG AS NEEDED
  43. HYDROXYZINE HYDROCHLORIDE [Concomitant]
     Active Substance: HYDROXYZINE HYDROCHLORIDE
     Dosage: UNK
  44. NEXIUM I.V. [Concomitant]
     Active Substance: ESOMEPRAZOLE SODIUM
     Dosage: UNK
  45. POTASSIUM CITRATE [Concomitant]
     Active Substance: POTASSIUM CITRATE
     Dosage: POTASSIUM CITRATE ER 1080 MG 1 X DAY AM
  46. TIZANIDINE HYDROCHLORIDE [Concomitant]
     Active Substance: TIZANIDINE HYDROCHLORIDE
     Dosage: UNK
  47. MOMETASONE FUROATE [Concomitant]
     Active Substance: MOMETASONE FUROATE
     Dosage: UNK
  48. LORATADINE D [Concomitant]
     Active Substance: LORATADINE\PSEUDOEPHEDRINE SULFATE
     Dosage: ), LORATADINE-D 10MG-240MG TAB ER 24H
  49. MONTELUKAST SODIUM [Concomitant]
     Active Substance: MONTELUKAST SODIUM
     Dosage: UNK
  50. CHOLECALCIFEROL [Concomitant]
     Active Substance: CHOLECALCIFEROL
     Dosage: VITAMIN D-400 10 MCG TABLET
  51. CHOLECALCIFEROL [Concomitant]
     Active Substance: CHOLECALCIFEROL
     Dosage: 5000 IU EVERY OTHER DAY AM
  52. HYDROXYCHLOROQUINE SULFATE [Concomitant]
     Active Substance: HYDROXYCHLOROQUINE SULFATE
     Dosage: 200 MG 2 DAY AM
  53. FISH OIL\OMEGA-3 FATTY ACIDS [Concomitant]
     Active Substance: FISH OIL\OMEGA-3 FATTY ACIDS
     Dosage: 3 TABS 1 X DAY AM
  54. HYOSCYAMINE SULFATE [Concomitant]
     Active Substance: HYOSCYAMINE SULFATE
     Indication: Abdominal pain upper
     Dosage: UNK
  55. HYOSCYAMINE SULFATE [Concomitant]
     Active Substance: HYOSCYAMINE SULFATE
     Dosage: 0.375 MG, AS NEEDED
  56. LOSARTAN POTASSIUM [Concomitant]
     Active Substance: LOSARTAN POTASSIUM
     Dosage: UNK
  57. TOFACITINIB CITRATE [Concomitant]
     Active Substance: TOFACITINIB CITRATE
     Dosage: UNK
  58. ONDANSETRON HYDROCHLORIDE [Concomitant]
     Active Substance: ONDANSETRON HYDROCHLORIDE
     Dosage: UNK
  59. TOPROL XL [Concomitant]
     Active Substance: METOPROLOL SUCCINATE
     Dosage: TOPROL XL 100 MG TAB ER 24H
  60. TOPROL XL [Concomitant]
     Active Substance: METOPROLOL SUCCINATE
     Dosage: 50 MG 1 X DAY AM
  61. FASENRA [Concomitant]
     Active Substance: BENRALIZUMAB
     Dosage: 30 ML/1 ML INJECTION 1 X MONTH
  62. LOSARTAN [Concomitant]
     Active Substance: LOSARTAN
     Dosage: 25 MG, 2X/DAY
  63. CLARITIN [Concomitant]
     Active Substance: LORATADINE
     Dosage: 10 MG 1 DAY AM
  64. DICYCLOMINE [Concomitant]
     Active Substance: DICYCLOMINE HYDROCHLORIDE
     Dosage: 10 MG 1 X AM AND PM
  65. PROAIR HFA [Concomitant]
     Active Substance: ALBUTEROL SULFATE
     Dosage: 2.5 MG PER 3 ML 2 PUFFS AS NEEDED
  66. TREVIX [Concomitant]
     Indication: Pain
     Dosage: 1-2 CAPS AS NEEDED FOR PAIN
     Route: 048
  67. FLONASE SENSIMIST ALLERGY RELIEF [Concomitant]
     Active Substance: FLUTICASONE FUROATE
     Dosage: 2 SQUIRTS UP NOSE AS NEEDED
  68. ZOFRAN [Concomitant]
     Active Substance: ONDANSETRON HYDROCHLORIDE
     Dosage: 8 MG 2 X DAY AS NEEDED
  69. MODAFINIL [Concomitant]
     Active Substance: MODAFINIL
     Dosage: 200 MG 2 X AM
  70. TRAMADOL [Concomitant]
     Active Substance: TRAMADOL\TRAMADOL HYDROCHLORIDE
     Dosage: 50 MG 1 X 8 HRS AS NEEDED
  71. NITROGLYCERIN [Concomitant]
     Active Substance: NITROGLYCERIN
     Dosage: 0.3 MG SL 1 UNDER TONGUE IF AFTER 15 MIN REPEAT IF NEEDED USE AS NEEDED
     Route: 060
  72. VITAMIN D2 [Concomitant]
     Active Substance: ERGOCALCIFEROL
     Dosage: 50,000 IU 1 X WEEK AM
  73. TRAZODONE [Concomitant]
     Active Substance: TRAZODONE HYDROCHLORIDE
     Dosage: 50 MG 1 X PM
  74. SINEMET [Concomitant]
     Active Substance: CARBIDOPA\LEVODOPA
     Dosage: 25-100 MG 1 TAB 3 X DAY
  75. OMEPRAZOLE [Concomitant]
     Active Substance: DONEPEZIL HYDROCHLORIDE\OMEPRAZOLE\OMEPRAZOLE MAGNESIUM
     Dosage: 40 MG 1 X AM/PM
  76. PROMETHAZINE [Concomitant]
     Active Substance: PROMETHAZINE HYDROCHLORIDE
     Dosage: 25 MG 1 X EVERY 12 HOURS AS NEEDED
  77. NALOXONE [Concomitant]
     Active Substance: NALOXONE
     Dosage: 4 MG/ ACTUATION SPRAY FOR EMERGENCY
  78. EPIPEN [Concomitant]
     Active Substance: EPINEPHRINE
     Dosage: FOR EMERGENCY
  79. PRAZOSIN [Concomitant]
     Active Substance: PRAZOSIN
     Dosage: 1 MG 1 X PM
  80. CABERGOLINE [Concomitant]
     Active Substance: CABERGOLINE
     Dosage: 0.5 MG 1/2 TUES
  81. AZELASTINE HYDROCHLORIDE [Concomitant]
     Active Substance: AZELASTINE HYDROCHLORIDE
     Dosage: 1 DROP 2 X AM/PM
  82. METFORMIN [Concomitant]
     Active Substance: METFORMIN HYDROCHLORIDE
     Dosage: 10W DOSE JUST STARTING
  83. SEMAGLUTIDE [Concomitant]
     Active Substance: SEMAGLUTIDE
     Dosage: 1 ML 40 UNITS 1 X WEEK

REACTIONS (2)
  - Vitreous floaters [Unknown]
  - Migraine [Not Recovered/Not Resolved]
